FAERS Safety Report 6034076-5 (Version None)
Quarter: 2009Q1

REPORT INFORMATION
  Report Type: 
  Country: None (occurrence: None)
  Receive Date: 20090112
  Receipt Date: 20090107
  Transmission Date: 20090719
  Serious: Yes (Other)
  Sender: FDA-Public Use
  Company Number: US-ASTRAZENECA-2009UW00491

PATIENT
  Age: 53 Year
  Sex: Male

DRUGS (2)
  1. ATACAND [Suspect]
     Route: 048
     Dates: start: 20070101, end: 20081101
  2. TOPROL-XL [Suspect]
     Route: 048

REACTIONS (1)
  - DIALYSIS [None]
